FAERS Safety Report 15650283 (Version 2)
Quarter: 2025Q4

REPORT INFORMATION
  Report Type: Spontaneous
  Country: EU (occurrence: EU)
  Receive Date: 20181123
  Receipt Date: 20251219
  Transmission Date: 20260118
  Serious: Yes (Congenital Anomaly)
  Sender: BAXTER
  Company Number: None

PATIENT
  Sex: Male

DRUGS (3)
  1. CYCLOPHOSPHAMIDE [Suspect]
     Active Substance: CYCLOPHOSPHAMIDE
     Indication: Breast cancer
     Dosage: 1100 MG, EVERY 3 WK (DATES OF TREATMENT: 13FEB2018, 07MAR2018, 28MAR2018 AND 18APR2018)
     Route: 064
     Dates: start: 20180213, end: 20180418
  2. EPIRUBICIN [Suspect]
     Active Substance: EPIRUBICIN
     Indication: Breast cancer
     Dosage: 165 MG, EVERY 3 WK (DATES OF TREATMENT: 13FEB2018, 07MAR2018, 28MAR2018 AND 18APR2018)
     Route: 064
     Dates: start: 20180213, end: 20180418
  3. TETRACYCLINE HYDROCHLORIDE [Concomitant]
     Active Substance: TETRACYCLINE HYDROCHLORIDE
     Indication: Acne
     Dosage: 250 MG, BID (EVERY 0.5 DAY)
     Route: 064
     Dates: start: 20171009

REACTIONS (2)
  - Pectus excavatum [Not Recovered/Not Resolved]
  - Foetal exposure during pregnancy [Recovered/Resolved]

NARRATIVE: CASE EVENT DATE: 20180213
